FAERS Safety Report 17985475 (Version 1)
Quarter: 2020Q3

REPORT INFORMATION
  Report Type: Spontaneous
  Country: JP (occurrence: JP)
  Receive Date: 20200706
  Receipt Date: 20200706
  Transmission Date: 20201103
  Serious: Yes (Disabling)
  Sender: FDA-Public Use
  Company Number: JP-PFIZER INC-2020254823

PATIENT
  Age: 20 Year
  Sex: Male

DRUGS (1)
  1. JZOLOFT OD 25MG [Suspect]
     Active Substance: SERTRALINE HYDROCHLORIDE
     Dosage: UNK
     Dates: start: 201707, end: 201709

REACTIONS (4)
  - Toxic epidermal necrolysis [Unknown]
  - Scar [Unknown]
  - Dyslalia [Unknown]
  - Eating disorder [Unknown]
